FAERS Safety Report 9128885 (Version 1)
Quarter: 2013Q1

REPORT INFORMATION
  Report Type: Spontaneous
  Country: US (occurrence: US)
  Receive Date: 20130228
  Receipt Date: 20130228
  Transmission Date: 20140127
  Serious: No
  Sender: FDA-Public Use
  Company Number: US-ABBOTT-12P-163-1017387-00

PATIENT
  Age: 78 Year
  Sex: Male
  Weight: 81.72 kg

DRUGS (1)
  1. ANDROGEL [Suspect]
     Indication: BLOOD TESTOSTERONE DECREASED
     Dates: start: 20120717

REACTIONS (4)
  - Rash macular [Recovering/Resolving]
  - Skin irritation [Recovered/Resolved]
  - Actinic keratosis [Recovering/Resolving]
  - Rash [Recovering/Resolving]
